FAERS Safety Report 9330526 (Version 1)
Quarter: 2013Q2

REPORT INFORMATION
  Report Type: Spontaneous
  Country: US (occurrence: None)
  Receive Date: 20130604
  Receipt Date: 20130604
  Transmission Date: 20140414
  Serious: Yes (Hospitalization)
  Sender: FDA-Public Use
  Company Number: None

PATIENT
  Age: 53 Year
  Sex: Female
  Weight: 61.5 kg

DRUGS (6)
  1. SEPHB4-HSA [Suspect]
     Indication: ADENOCARCINOMA OF COLON
     Dosage: 10 MG/KG D1, 8, 15, 22 IV DRIP
     Dates: start: 20130220, end: 20130531
  2. SEPHB4-HSA [Suspect]
     Indication: LARGE INTESTINAL OBSTRUCTION
     Dosage: 10 MG/KG D1, 8, 15, 22 IV DRIP
     Dates: start: 20130220, end: 20130531
  3. OXYCODONE [Concomitant]
  4. TRAMADOL [Concomitant]
  5. COMPAZINE [Concomitant]
  6. BENAZEPRIL [Concomitant]

REACTIONS (6)
  - Nausea [None]
  - Vomiting [None]
  - Abdominal pain [None]
  - Hypertension [None]
  - Tumour pain [None]
  - Abdominal mass [None]
